FAERS Safety Report 10884727 (Version 3)
Quarter: 2015Q1

REPORT INFORMATION
  Report Type: Spontaneous
  Country: US (occurrence: US)
  Receive Date: 20150304
  Receipt Date: 20150323
  Transmission Date: 20150721
  Serious: Yes (Hospitalization)
  Sender: FDA-Public Use
  Company Number: US-UNITED THERAPEUTICS-UNT-2014-012943

PATIENT
  Age: 55 Year
  Sex: Female
  Weight: 97.52 kg

DRUGS (6)
  1. REMODULIN [Suspect]
     Active Substance: TREPROSTINIL
     Dosage: 0.0306 ?G/KG, CONTINUING
     Route: 041
     Dates: start: 20141222
  2. REVATIO [Concomitant]
     Active Substance: SILDENAFIL CITRATE
     Indication: PRODUCT USED FOR UNKNOWN INDICATION
  3. ASPIRIN                            /00002701/ [Concomitant]
     Active Substance: ASPIRIN
     Indication: PRODUCT USED FOR UNKNOWN INDICATION
  4. OPSUMIT [Concomitant]
     Active Substance: MACITENTAN
     Indication: PRODUCT USED FOR UNKNOWN INDICATION
  5. REMODULIN [Suspect]
     Active Substance: TREPROSTINIL
     Indication: PULMONARY ARTERIAL HYPERTENSION
     Dosage: 0.01 ?G/KG, CONTINUING
     Route: 041
     Dates: start: 20141212
  6. REMODULIN [Suspect]
     Active Substance: TREPROSTINIL
     Dosage: 0.025 ?G/KG/MIN, CONTINUING
     Route: 041

REACTIONS (13)
  - Pain in jaw [Unknown]
  - Medical device complication [Unknown]
  - Discomfort [Unknown]
  - Dizziness [Recovered/Resolved]
  - Diarrhoea [Unknown]
  - Fatigue [Unknown]
  - Pain in extremity [Unknown]
  - Headache [Unknown]
  - Feeling hot [Recovered/Resolved]
  - Nausea [Not Recovered/Not Resolved]
  - Surgery [Unknown]
  - Pain [Unknown]
  - Tremor [Recovered/Resolved]

NARRATIVE: CASE EVENT DATE: 201412
